FAERS Safety Report 6314205-6 (Version None)
Quarter: 2009Q3

REPORT INFORMATION
  Report Type: 
  Country: None (occurrence: None)
  Receive Date: 20090817
  Receipt Date: 20090804
  Transmission Date: 20100115
  Serious: Yes (Other)
  Sender: FDA-Public Use
  Company Number: 8049987

PATIENT
  Sex: Female
  Weight: 53.6 kg

DRUGS (1)
  1. KEPPRA [Suspect]

REACTIONS (1)
  - BLOOD TRIGLYCERIDES INCREASED [None]
